FAERS Safety Report 9373661 (Version 2)
Quarter: 2013Q3

REPORT INFORMATION
  Report Type: Report from Study
  Country: CA (occurrence: CA)
  Receive Date: 20130627
  Receipt Date: 20130808
  Transmission Date: 20140515
  Serious: Yes (Hospitalization)
  Sender: FDA-Public Use
  Company Number: CA-ABBOTT-13P-028-1103135-00

PATIENT
  Age: 32 Year
  Sex: Female

DRUGS (2)
  1. HUMIRA [Suspect]
     Indication: CROHN^S DISEASE
     Route: 058
     Dates: start: 20120917, end: 20130430
  2. METHOTREXATE [Concomitant]
     Indication: CROHN^S DISEASE

REACTIONS (6)
  - Abdominal distension [Unknown]
  - Small intestinal bacterial overgrowth [Unknown]
  - Crohn^s disease [Unknown]
  - Drug dose omission [Not Recovered/Not Resolved]
  - Irritable bowel syndrome [Unknown]
  - Abdominal pain [Unknown]
